FAERS Safety Report 13618691 (Version 9)
Quarter: 2020Q1

REPORT INFORMATION
  Report Type: Report from Study
  Country: JP (occurrence: JP)
  Receive Date: 20170606
  Receipt Date: 20200323
  Transmission Date: 20200409
  Serious: Yes (Death, Hospitalization, Other)
  Sender: FDA-Public Use
  Company Number: JP-BRISTOL-MYERS SQUIBB COMPANY-BMS-2017-014256

PATIENT
  Age: 84 Year
  Sex: Female
  Weight: 48 kg

DRUGS (1)
  1. NIVOLUMAB [Suspect]
     Active Substance: NIVOLUMAB
     Indication: MALIGNANT MELANOMA
     Dosage: 3 MG/KG, UNK
     Route: 041
     Dates: start: 20160621, end: 20161011

REACTIONS (10)
  - Fall [Unknown]
  - Embolism venous [Recovering/Resolving]
  - Adrenocorticotropic hormone deficiency [Not Recovered/Not Resolved]
  - Hip fracture [Recovering/Resolving]
  - Blood lactate dehydrogenase increased [None]
  - Hip surgery [Recovering/Resolving]
  - Hypothyroidism [None]
  - Leukoderma [Unknown]
  - Malignant neoplasm progression [Fatal]
  - Aspartate aminotransferase increased [Not Recovered/Not Resolved]

NARRATIVE: CASE EVENT DATE: 20160622
